FAERS Safety Report 5334746-8 (Version None)
Quarter: 2007Q2

REPORT INFORMATION
  Report Type: 
  Country: None (occurrence: None)
  Receive Date: 20070521
  Receipt Date: 20070501
  Transmission Date: 20071010
  Serious: Yes (Hospitalization)
  Sender: FDA-Public Use
  Company Number: DAV-AE-CLO-07-004

PATIENT
  Age: 5 Year
  Sex: Female
  Weight: 16.8 kg

DRUGS (1)
  1. CLONIDINE HCL [Suspect]
     Indication: AGITATION
     Dosage: 0.1 MG VIA GT X3

REACTIONS (7)
  - CARDIAC ARREST [None]
  - HEART RATE INCREASED [None]
  - INCORRECT DRUG ADMINISTRATION DURATION [None]
  - INCREASED BRONCHIAL SECRETION [None]
  - LEFT VENTRICULAR DYSFUNCTION [None]
  - MEDICATION ERROR [None]
  - SINUS BRADYCARDIA [None]
